FAERS Safety Report 6313887-2 (Version None)
Quarter: 2009Q3

REPORT INFORMATION
  Report Type: 
  Country: None (occurrence: None)
  Receive Date: 20090818
  Receipt Date: 20090804
  Transmission Date: 20100115
  Serious: Yes (Hospitalization)
  Sender: FDA-Public Use
  Company Number: DE-MYLANLABS-2009S1013943

PATIENT
  Age: 66 Year
  Sex: Male
  Weight: 86 kg

DRUGS (11)
  1. ARCOXIA [Interacting]
     Indication: RHEUMATOID ARTHRITIS
     Dosage: ZUR ENTLASSUNG IMMER NOCH PAUSIERT
     Route: 048
     Dates: start: 20070101, end: 20080917
  2. METEX [Suspect]
     Indication: RHEUMATOID ARTHRITIS
     Route: 048
     Dates: start: 20050101
  3. FALITHROM [Interacting]
     Indication: ATRIAL FIBRILLATION
     Route: 048
     Dates: start: 20060101, end: 20080917
  4. ALLOPURINOL [Interacting]
     Indication: HYPERURICAEMIA
     Route: 048
     Dates: start: 20060101, end: 20080917
  5. DECORTIN [Concomitant]
     Indication: RHEUMATOID ARTHRITIS
     Dosage: SEIT 2006 REDUZIERT (SEIT 2000) 1.5 - 0 - 0.5
     Route: 048
     Dates: start: 20000101
  6. FOLSAEURE [Concomitant]
     Indication: BLOOD FOLATE DECREASED
     Route: 048
  7. PANTOZOL [Concomitant]
     Indication: PROPHYLAXIS AGAINST GASTROINTESTINAL ULCER
     Route: 048
  8. RAMIPRIL [Concomitant]
     Indication: HYPERTENSION
     Dosage: RAMIPRIL 2.5MG ; HCT 12,5 MG
     Route: 048
     Dates: start: 20060101
  9. RAMIPRIL [Concomitant]
     Route: 048
     Dates: start: 20060101
  10. METOPROLOL [Concomitant]
     Indication: HYPERTENSION
     Route: 048
     Dates: start: 20060101
  11. FLECAINIDE ACETATE [Concomitant]
     Indication: ATRIAL FIBRILLATION
     Route: 048
     Dates: start: 20060101

REACTIONS (2)
  - DRUG INTERACTION [None]
  - HAEMORRHAGE [None]
